FAERS Safety Report 8511782 (Version 2)
Quarter: 2013Q1

REPORT INFORMATION
  Report Type: Spontaneous
  Country: US (occurrence: US)
  Receive Date: 20120413
  Receipt Date: 20130221
  Transmission Date: 20140127
  Serious: No
  Sender: FDA-Public Use
  Company Number: US-ASTRAZENECA-2011SE34097

PATIENT
  Age: 55 Year
  Sex: Male

DRUGS (2)
  1. SYMBICORT PMDI [Suspect]
     Dosage: 160/4.5 MCG UNKNOWN
     Route: 055
  2. NEXIUM [Suspect]
     Route: 048

REACTIONS (10)
  - Nasopharyngitis [Unknown]
  - Dysgeusia [Unknown]
  - Blood glucose decreased [Unknown]
  - Aphagia [Unknown]
  - Dyspepsia [Unknown]
  - Sleep disorder due to a general medical condition [Unknown]
  - Gastrooesophageal reflux disease [Unknown]
  - Throat irritation [Unknown]
  - Nausea [Unknown]
  - Drug dose omission [Unknown]
